FAERS Safety Report 25218066 (Version 1)
Quarter: 2025Q2

REPORT INFORMATION
  Report Type: Spontaneous
  Country: PT (occurrence: PT)
  Receive Date: 20250421
  Receipt Date: 20250421
  Transmission Date: 20250716
  Serious: Yes (Other)
  Sender: ABBVIE
  Company Number: None

PATIENT
  Age: 49 Year
  Sex: Female
  Weight: 63 kg

DRUGS (3)
  1. ADALIMUMAB [Suspect]
     Active Substance: ADALIMUMAB
     Indication: Rheumatoid arthritis
     Route: 058
  2. FLURBIPROFEN [Suspect]
     Active Substance: FLURBIPROFEN
     Indication: Analgesic therapy
     Route: 058
  3. FLURBIPROFEN [Suspect]
     Active Substance: FLURBIPROFEN
     Indication: Analgesic therapy
     Dosage: IMPREGNATED WOUND DRESSING?PLACING A 40 MILLIGRAM WOUND DRESSING PER DAY OSTEOARTICULAR ANALGESIA
     Route: 058
     Dates: start: 20250324, end: 20250324

REACTIONS (1)
  - Burns third degree [Recovering/Resolving]

NARRATIVE: CASE EVENT DATE: 20250324
